FAERS Safety Report 7799461-X (Version None)
Quarter: 2011Q4

REPORT INFORMATION
  Report Type: 
  Country: None (occurrence: None)
  Receive Date: 20111006
  Receipt Date: 20110928
  Transmission Date: 20120403
  Serious: No
  Sender: FDA-Public Use
  Company Number: US-B.I. PHARMACEUTICALS,INC./RIDGEFIELD-2011-BP-23186BP

PATIENT
  Sex: Female

DRUGS (1)
  1. PRADAXA [Suspect]

REACTIONS (6)
  - MYALGIA [None]
  - CONTUSION [None]
  - ABASIA [None]
  - ARTHRALGIA [None]
  - ABDOMINAL DISTENSION [None]
  - ABDOMINAL RIGIDITY [None]
